FAERS Safety Report 15592322 (Version 1)
Quarter: 2018Q4

REPORT INFORMATION
  Report Type: Spontaneous
  Country: CN (occurrence: CN)
  Receive Date: 20181107
  Receipt Date: 20181107
  Transmission Date: 20190205
  Serious: Yes (Life-Threatening, Other)
  Sender: FDA-Public Use
  Company Number: CN-TELIGENT, INC-IGIL20180636

PATIENT
  Age: 41 Year
  Sex: Female
  Weight: 28 kg

DRUGS (1)
  1. CEFTAZIDIME. [Suspect]
     Active Substance: CEFTAZIDIME
     Indication: LUNG INFECTION
     Dosage: 2 GRAMS IN NS 100 ML
     Route: 041
     Dates: start: 20180911, end: 20180911

REACTIONS (4)
  - Hyperhidrosis [Recovering/Resolving]
  - Chest discomfort [Recovering/Resolving]
  - Dyspnoea [Recovering/Resolving]
  - Anaphylactoid reaction [Recovering/Resolving]

NARRATIVE: CASE EVENT DATE: 20180911
